FAERS Safety Report 20011638 (Version 3)
Quarter: 2021Q4

REPORT INFORMATION
  Report Type: Spontaneous
  Country: US (occurrence: None)
  Receive Date: 20211029
  Receipt Date: 20211203
  Transmission Date: 20220303
  Serious: Yes (Life-Threatening, Hospitalization, Other)
  Sender: FDA-Public Use
  Company Number: US-MLMSERVICE-20211018-3168060-1

PATIENT
  Age: 6 Decade
  Sex: Female

DRUGS (9)
  1. LIDOCAINE [Suspect]
     Active Substance: LIDOCAINE
     Indication: Product used for unknown indication
     Dosage: SUBMAXIMALLY DOSED
  2. LIDOCAINE [Suspect]
     Active Substance: LIDOCAINE
     Route: 008
  3. LIDOCAINE [Suspect]
     Active Substance: LIDOCAINE
  4. LIDOCAINE [Suspect]
     Active Substance: LIDOCAINE
     Dosage: INCREMENTAL
     Route: 008
  5. BUPIVACAINE [Suspect]
     Active Substance: BUPIVACAINE
     Indication: Product used for unknown indication
     Dosage: CLINICAL DOSES
     Route: 008
  6. BUPIVACAINE [Suspect]
     Active Substance: BUPIVACAINE
     Route: 008
  7. LIDOCAINE [Suspect]
     Active Substance: LIDOCAINE
     Indication: Product used for unknown indication
     Route: 061
  8. EPINEPHRINE [Concomitant]
     Active Substance: EPINEPHRINE
     Indication: Product used for unknown indication
     Dosage: UNKNOWN
     Route: 065
  9. IOHEXOL [Concomitant]
     Active Substance: IOHEXOL
     Indication: Product used for unknown indication
     Route: 065

REACTIONS (3)
  - Bundle branch block left [Recovered/Resolved]
  - Circulatory collapse [Recovered/Resolved]
  - Local anaesthetic systemic toxicity [Recovered/Resolved]
